FAERS Safety Report 8462648-7 (Version None)
Quarter: 2012Q2

REPORT INFORMATION
  Report Type: 
  Country: None (occurrence: None)
  Receive Date: 20120625
  Receipt Date: 20120620
  Transmission Date: 20120825
  Serious: Yes (Other)
  Sender: FDA-Public Use
  Company Number: US-ROCHE-1048996

PATIENT
  Sex: Female
  Weight: 124.4 kg

DRUGS (18)
  1. ACTONEL [Concomitant]
  2. ACTEMRA [Suspect]
     Route: 042
     Dates: start: 20120110, end: 20120425
  3. VITAMIN E [Concomitant]
  4. FISH OIL [Concomitant]
  5. HYDROCODONE [Concomitant]
     Route: 048
  6. ASMANEX TWISTHALER [Concomitant]
  7. AUGMENTIN '125' [Concomitant]
  8. DAILY VITAMIN [Concomitant]
  9. CYMBALTA [Concomitant]
  10. LEVOTHYROXINE [Concomitant]
     Route: 048
  11. FOLIC ACID [Concomitant]
  12. FLEXERIL [Concomitant]
     Route: 048
  13. IBUPROFEN (ADVIL) [Concomitant]
  14. VITAMIN D [Concomitant]
     Route: 048
  15. ACTEMRA [Suspect]
     Indication: RHEUMATOID ARTHRITIS
     Route: 042
     Dates: start: 20120110
  16. PLAQUENIL [Concomitant]
     Route: 048
  17. HYDROXYCHLOROQUINE SULFATE [Concomitant]
     Route: 048
  18. SULFASALAZINE [Concomitant]

REACTIONS (6)
  - RASH [None]
  - HAEMATOCHEZIA [None]
  - BLOOD PRESSURE INCREASED [None]
  - FATIGUE [None]
  - LEUKOPENIA [None]
  - DEPRESSION [None]
